FAERS Safety Report 14573278 (Version 1)
Quarter: 2018Q1

REPORT INFORMATION
  Report Type: Spontaneous
  Country: US (occurrence: US)
  Receive Date: 20180226
  Receipt Date: 20180226
  Transmission Date: 20180509
  Serious: Yes (Other)
  Sender: FDA-Public Use
  Company Number: US-PFIZER INC-2018078793

PATIENT
  Age: 52 Year
  Sex: Male
  Weight: 95.25 kg

DRUGS (15)
  1. LYRICA [Suspect]
     Active Substance: PREGABALIN
     Indication: NEUROPATHY PERIPHERAL
  2. ROPINIROLE HCL [Concomitant]
     Active Substance: ROPINIROLE HYDROCHLORIDE
     Indication: RESTLESS LEGS SYNDROME
     Dosage: 0.5MG TABLET ONCE AT NIGHT
  3. NAPROXEN. [Concomitant]
     Active Substance: NAPROXEN
     Indication: PAIN
     Dosage: 500 MG, TWICE A DAY
  4. BASAGLAR [Concomitant]
     Active Substance: INSULIN GLARGINE
     Dosage: 13 UNITS AT BEDTIME
  5. LYRICA [Suspect]
     Active Substance: PREGABALIN
     Indication: NEURALGIA
  6. LISINOPRIL. [Concomitant]
     Active Substance: LISINOPRIL
     Indication: BLOOD PRESSURE ABNORMAL
     Dosage: 20 MG, ONCE A DAY
  7. TIZANIDINE HCL [Concomitant]
     Active Substance: TIZANIDINE HYDROCHLORIDE
     Indication: INSOMNIA
     Dosage: 4MG AS NEEDED USUALLY AT BEDTIME
  8. CLOPIDOGREL [Concomitant]
     Active Substance: CLOPIDOGREL BISULFATE
     Indication: BLOOD DISORDER
     Dosage: 75 MG, ONCE A DAY
  9. NAPROXEN. [Concomitant]
     Active Substance: NAPROXEN
     Indication: INFLAMMATION
  10. BAYER LOW DOSE ASPIRIN [Concomitant]
     Indication: BLOOD DISORDER
     Dosage: TWO EVERY MORNING
  11. ALOGLIPTIN W/METFORMIN [Concomitant]
     Indication: DIABETES MELLITUS
     Dosage: [ALOGLIPTIN 12.5MG]/ [METFORMIN1000MG], TWICE A DAY
  12. LYRICA [Suspect]
     Active Substance: PREGABALIN
     Indication: BACK DISORDER
  13. FISH OIL [Concomitant]
     Active Substance: FISH OIL
     Indication: CARDIAC DISORDER
     Dosage: 1000 MG EVERY MORNING
  14. LYRICA [Suspect]
     Active Substance: PREGABALIN
     Indication: NERVE INJURY
     Dosage: 150 MG, THREE TIMES A DAY
  15. CARVEDILOL. [Concomitant]
     Active Substance: CARVEDILOL
     Indication: BLOOD PRESSURE ABNORMAL
     Dosage: 12.5 MG, TWICE A DAY

REACTIONS (1)
  - Diabetes mellitus [Not Recovered/Not Resolved]
